FAERS Safety Report 7181162-2 (Version None)
Quarter: 2010Q4

REPORT INFORMATION
  Report Type: 
  Country: None (occurrence: None)
  Receive Date: 20101221
  Receipt Date: 20100418
  Transmission Date: 20110411
  Serious: No
  Sender: FDA-Public Use
  Company Number: US-AMGEN-TCS407028

PATIENT

DRUGS (3)
  1. ENBREL [Suspect]
     Indication: RHEUMATOID ARTHRITIS
     Dosage: 50 MG, QWK
     Route: 058
     Dates: start: 20100315
  2. METHOTREXATE [Concomitant]
  3. HYDROXYCHLOROQUINE SULFATE [Concomitant]

REACTIONS (12)
  - ARTHRALGIA [None]
  - BODY TEMPERATURE INCREASED [None]
  - CHROMATURIA [None]
  - FATIGUE [None]
  - HEAD INJURY [None]
  - INJECTION SITE HAEMATOMA [None]
  - INJECTION SITE PAIN [None]
  - JOINT SWELLING [None]
  - MICTURITION URGENCY [None]
  - MYALGIA [None]
  - POLLAKIURIA [None]
  - TOOTH ABSCESS [None]
